FAERS Safety Report 8880038 (Version 2)
Quarter: 2012Q4

REPORT INFORMATION
  Report Type: 
  Country: ES (occurrence: ES)
  Receive Date: 20121101
  Receipt Date: 20121206
  Transmission Date: 20130627
  Serious: Yes (Hospitalization)
  Sender: FDA-Public Use
  Company Number: ES-009507513-1210ESP014041

PATIENT
  Age: 44 Year
  Sex: Female
  Weight: 40 kg

DRUGS (10)
  1. ZOCOR [Suspect]
     Indication: HYPERCHOLESTEROLAEMIA
     Dosage: 10 mg, qd
     Route: 048
     Dates: start: 20111217, end: 20120118
  2. CYCLOSPORINE [Interacting]
     Indication: LIVER TRANSPLANT
     Dosage: UNK, strength according to levels
     Route: 065
     Dates: start: 2011
  3. LOPINAVIR (+) RITONAVIR [Interacting]
     Indication: HIV INFECTION
     Dosage: 300/75 mg, bid
     Route: 048
     Dates: start: 2011
  4. LAMIVUDINE [Concomitant]
     Indication: HIV INFECTION
     Dosage: 300 mg, qd
     Route: 048
     Dates: start: 2011
  5. RALTEGRAVIR [Concomitant]
     Indication: HIV INFECTION
     Dosage: 800 mg, qd
     Route: 048
     Dates: start: 2011
  6. OMEPRAZOLE [Concomitant]
     Indication: PROPHYLAXIS AGAINST GASTROINTESTINAL ULCER
     Dosage: 20 mg, Unknown
     Route: 048
  7. URSODEOXYCHOLIC ACID [Concomitant]
     Indication: PRODUCT USED FOR UNKNOWN INDICATION
     Dosage: 600 mg, Unknown
     Route: 048
     Dates: start: 2011
  8. PREDNISONE [Concomitant]
     Indication: PRODUCT USED FOR UNKNOWN INDICATION
     Dosage: 5 mg, Unknown
     Route: 048
     Dates: start: 20111216, end: 20120102
  9. ACENOCOUMAROL [Concomitant]
     Indication: PRODUCT USED FOR UNKNOWN INDICATION
     Dosage: UNK, Unknown
     Route: 048
     Dates: start: 20120109, end: 20120116
  10. FUROSEMIDE [Concomitant]
     Indication: PRODUCT USED FOR UNKNOWN INDICATION
     Dosage: UNK, Unknown
     Route: 048
     Dates: start: 20120113, end: 20120116

REACTIONS (1)
  - Rhabdomyolysis [Recovered/Resolved]
